FAERS Safety Report 21722704 (Version 1)
Quarter: 2022Q4

REPORT INFORMATION
  Report Type: Spontaneous
  Country: US (occurrence: None)
  Receive Date: 20221212
  Receipt Date: 20221212
  Transmission Date: 20230113
  Serious: Yes (Other)
  Sender: FDA-Public Use
  Company Number: None

PATIENT
  Age: 70 Year
  Sex: Male

DRUGS (2)
  1. CITRATE OF MAGNESIUM [Suspect]
     Active Substance: MAGNESIUM CITRATE
     Indication: Constipation
     Route: 048
     Dates: start: 20100101, end: 20221203
  2. DEVICE [Concomitant]
     Active Substance: DEVICE

REACTIONS (1)
  - Fatigue [None]

NARRATIVE: CASE EVENT DATE: 20221203
